FAERS Safety Report 18231996 (Version 1)
Quarter: 2020Q3

REPORT INFORMATION
  Report Type: Spontaneous
  Country: US (occurrence: US)
  Receive Date: 20200903
  Receipt Date: 20200903
  Transmission Date: 20201103
  Serious: Yes (Hospitalization, Disabling)
  Sender: FDA-Public Use
  Company Number: None

PATIENT
  Age: 42 Year
  Sex: Female

DRUGS (1)
  1. CYMBALTA [Suspect]
     Active Substance: DULOXETINE HYDROCHLORIDE
     Indication: DEPRESSION
     Route: 048
     Dates: start: 20200623, end: 20200818

REACTIONS (5)
  - Chills [None]
  - Fatigue [None]
  - Tremor [None]
  - Oxygen saturation decreased [None]
  - Illness [None]

NARRATIVE: CASE EVENT DATE: 20200824
